FAERS Safety Report 6765392-7 (Version None)
Quarter: 2010Q2

REPORT INFORMATION
  Report Type: 
  Country: None (occurrence: None)
  Receive Date: 20100611
  Receipt Date: 20100602
  Transmission Date: 20101027
  Serious: No
  Sender: FDA-Public Use
  Company Number: US-ROXANE LABORATORIES, INC.-2010-RO-00704RO

PATIENT
  Age: 26 Year
  Sex: Male

DRUGS (3)
  1. MERCAPTOPURINE [Suspect]
     Indication: CROHN'S DISEASE
     Route: 048
  2. PREDNISONE [Suspect]
     Indication: CROHN'S DISEASE
  3. VITAMIN D [Concomitant]

REACTIONS (3)
  - ACNE [None]
  - CUSHINGOID [None]
  - PRURITUS GENERALISED [None]
